FAERS Safety Report 7699326-8 (Version None)
Quarter: 2011Q3

REPORT INFORMATION
  Report Type: 
  Country: None (occurrence: None)
  Receive Date: 20110819
  Receipt Date: 20110810
  Transmission Date: 20111222
  Serious: Yes (Life-Threatening, Hospitalization, Other)
  Sender: FDA-Public Use
  Company Number: US-BAYER-2011-022171

PATIENT
  Age: 18 Year
  Sex: Female
  Weight: 127 kg

DRUGS (3)
  1. YASMIN [Suspect]
     Indication: POLYCYSTIC OVARIES
     Dosage: UNK
     Dates: start: 20050517, end: 20080501
  2. DROSPIRENONE AND ETHINYL ESTRADIOL [Suspect]
     Indication: POLYCYSTIC OVARIES
     Dosage: UNK
     Dates: start: 20080501
  3. PERCOCET [Concomitant]
     Indication: PAIN
     Dosage: UNK
     Dates: start: 20081001

REACTIONS (6)
  - PAIN [None]
  - CHOLELITHIASIS [None]
  - ANXIETY [None]
  - CHOLECYSTITIS ACUTE [None]
  - GALLBLADDER DISORDER [None]
  - INJURY [None]
